FAERS Safety Report 4461773-5 (Version None)
Quarter: 2004Q3

REPORT INFORMATION
  Report Type: 
  Country: None (occurrence: None)
  Receive Date: 20040929
  Receipt Date: 20031014
  Transmission Date: 20050211
  Serious: No
  Sender: FDA-Public Use
  Company Number: US-GLAXOSMITHKLINE-A0430269A

PATIENT
  Age: 64 Year
  Sex: Female

DRUGS (2)
  1. SEREVENT [Suspect]
     Dosage: 2PUFF TWICE PER DAY
     Route: 055
     Dates: start: 20031012
  2. COMBIVENT [Concomitant]

REACTIONS (3)
  - ANXIETY [None]
  - HYPERHIDROSIS [None]
  - INSOMNIA [None]
